FAERS Safety Report 9664012 (Version 3)
Quarter: 2014Q1

REPORT INFORMATION
  Report Type: Spontaneous
  Country: US (occurrence: US)
  Receive Date: 20131101
  Receipt Date: 20140312
  Transmission Date: 20141002
  Serious: Yes (Hospitalization, Other)
  Sender: FDA-Public Use
  Company Number: US-BAYER-2013-133280

PATIENT
  Age: 31 Year
  Sex: Female
  Weight: 116.55 kg

DRUGS (17)
  1. YAZ [Suspect]
     Dosage: UNK
     Dates: start: 2008, end: 2009
  2. YASMIN [Suspect]
     Dosage: UNK
     Dates: start: 2008, end: 2009
  3. OCELLA [Suspect]
     Dosage: UNK
     Dates: start: 2008, end: 2009
  4. CYMBALTA [Concomitant]
  5. XANAX [Concomitant]
  6. METFORMIN [Concomitant]
  7. DIFLUCAN [Concomitant]
  8. METROGEL [Concomitant]
  9. MOBIC [Concomitant]
  10. VICODIN [Concomitant]
  11. ACIPHEX [Concomitant]
     Dosage: 20 MG, DAILY
     Route: 048
  12. FERROUS SULFATE [Concomitant]
     Dosage: 325 MG, BID
     Route: 048
  13. METOCLOPRAMIDE [Concomitant]
  14. INSULIN GLULISINE [Concomitant]
  15. INSULIN GLARGINE [Concomitant]
  16. MELOXICAM [Concomitant]
  17. MIRAPEX [Concomitant]

REACTIONS (9)
  - Injury [None]
  - Transient ischaemic attack [None]
  - Pulmonary embolism [None]
  - Pain [None]
  - Abdominal pain [None]
  - General physical health deterioration [None]
  - Anxiety [None]
  - Emotional distress [None]
  - Pain [None]
